FAERS Safety Report 19732243 (Version 2)
Quarter: 2021Q3

REPORT INFORMATION
  Report Type: Spontaneous
  Country: IT (occurrence: IT)
  Receive Date: 20210820
  Receipt Date: 20210823
  Transmission Date: 20211014
  Serious: Yes (Death, Other)
  Sender: FDA-Public Use
  Company Number: IT-JAZZ-2021-IT-009636

PATIENT
  Age: 59 Year
  Sex: Male

DRUGS (2)
  1. VYXEOS [Suspect]
     Active Substance: CYTARABINE\DAUNORUBICIN
     Dosage: FIRST CONSOLIDATION CYCLE
     Dates: start: 202104
  2. VYXEOS [Suspect]
     Active Substance: CYTARABINE\DAUNORUBICIN
     Indication: ACUTE MYELOID LEUKAEMIA
     Dosage: FIRST INDUCTION CYCLE
     Dates: start: 202101, end: 2021

REACTIONS (2)
  - Aplasia [Unknown]
  - Sepsis [Fatal]

NARRATIVE: CASE EVENT DATE: 2021
